FAERS Safety Report 5256398-8 (Version None)
Quarter: 2007Q1

REPORT INFORMATION
  Report Type: 
  Country: None (occurrence: None)
  Receive Date: 20070306
  Receipt Date: 20070223
  Transmission Date: 20070707
  Serious: Yes (Hospitalization)
  Sender: FDA-Public Use
  Company Number: CH-ROCHE-484026

PATIENT
  Age: 64 Year
  Sex: Female

DRUGS (7)
  1. CAPECITABINE [Suspect]
     Route: 048
     Dates: start: 20051118
  2. GEMCITABINE [Suspect]
     Route: 042
     Dates: start: 20051118
  3. OXALIPLATIN [Suspect]
     Route: 042
     Dates: start: 20051118
  4. MST [Concomitant]
     Route: 048
     Dates: start: 20051108
  5. GASTROSIL [Concomitant]
     Dosage: TDD = 2 X 1TBL.  DRUG NAME REPORTED AS ^GASTROSIL RETARD^.
     Route: 048
     Dates: start: 20051118
  6. 1 CONCOMITANT DRUG [Concomitant]
     Dosage: REPORTED AS ^DORAIGON^. TDD = 4 X 500MG
     Route: 048
     Dates: start: 20051106, end: 20051121
  7. FRAGMIN [Concomitant]
     Route: 058
     Dates: start: 20051116, end: 20051126

REACTIONS (2)
  - CHOLESTASIS [None]
  - PYREXIA [None]
